APPROVED DRUG PRODUCT: FERNDEX
Active Ingredient: DEXTROAMPHETAMINE SULFATE
Strength: 5MG
Dosage Form/Route: TABLET;ORAL
Application: A084001 | Product #001
Applicant: FERNDALE LABORATORIES INC
Approved: Approved Prior to Jan 1, 1982 | RLD: No | RS: No | Type: DISCN